FAERS Safety Report 5578426-2 (Version None)
Quarter: 2007Q4

REPORT INFORMATION
  Report Type: 
  Country: None (occurrence: None)
  Receive Date: 20071231
  Receipt Date: 20071221
  Transmission Date: 20080405
  Serious: Yes (Other)
  Sender: FDA-Public Use
  Company Number: FR-PFIZER INC-2007107021

PATIENT
  Age: 55 Year
  Sex: Male

DRUGS (2)
  1. TAHOR [Suspect]
  2. FLUINDIONE [Concomitant]

REACTIONS (4)
  - ALDOLASE INCREASED [None]
  - BLOOD CREATINE PHOSPHOKINASE INCREASED [None]
  - POSTURE ABNORMAL [None]
  - RHABDOMYOLYSIS [None]
